FAERS Safety Report 17063372 (Version 1)
Quarter: 2019Q4

REPORT INFORMATION
  Report Type: Spontaneous
  Country: US (occurrence: US)
  Receive Date: 20191122
  Receipt Date: 20191122
  Transmission Date: 20200122
  Serious: No
  Sender: FDA-Public Use
  Company Number: US-ASTRAZENECA-2019SF55742

PATIENT
  Age: 24965 Day
  Sex: Female

DRUGS (7)
  1. RESTORIL [Concomitant]
     Active Substance: TEMAZEPAM
  2. CALQUENCE [Suspect]
     Active Substance: ACALABRUTINIB
     Indication: CHRONIC LYMPHOCYTIC LEUKAEMIA
     Route: 048
  3. CALQUENCE [Suspect]
     Active Substance: ACALABRUTINIB
     Indication: CHRONIC LYMPHOCYTIC LEUKAEMIA
     Route: 048
     Dates: start: 20191025
  4. VITAMIN D [Concomitant]
     Active Substance: VITAMIN D NOS
  5. CALQUENCE [Suspect]
     Active Substance: ACALABRUTINIB
     Indication: CHRONIC LYMPHOCYTIC LEUKAEMIA
     Dosage: TAKING BOTH DOSES ON FRIDAY AND ONE DOSE ON SATURDAY
     Route: 048
     Dates: start: 20191026
  6. VALTREX [Concomitant]
     Active Substance: VALACYCLOVIR HYDROCHLORIDE
  7. LEXAPRO [Concomitant]
     Active Substance: ESCITALOPRAM OXALATE
     Dosage: 20.0MG UNKNOWN

REACTIONS (6)
  - Headache [Recovering/Resolving]
  - Vomiting [Unknown]
  - Dehydration [Unknown]
  - Herpes zoster [Unknown]
  - Pain [Unknown]
  - Intentional product misuse [Unknown]

NARRATIVE: CASE EVENT DATE: 20191026
